FAERS Safety Report 7534391-X (Version None)
Quarter: 2011Q2

REPORT INFORMATION
  Report Type: 
  Country: None (occurrence: None)
  Receive Date: 20110608
  Receipt Date: 20110517
  Transmission Date: 20111010
  Serious: No
  Sender: FDA-Public Use
  Company Number: US-AMGEN-USASP2011025539

PATIENT
  Sex: Female

DRUGS (7)
  1. AMITRIPTYLINE HYDROCHLORIDE [Concomitant]
  2. PROLIA [Suspect]
     Indication: OSTEOPOROSIS POSTMENOPAUSAL
     Dosage: 60 MG, Q6MO
     Dates: start: 20110314
  3. PRILOSEC [Concomitant]
  4. CITALOPRAM HYDROBROMIDE [Concomitant]
  5. FISH OIL [Concomitant]
  6. CALCIUM CARBONATE [Concomitant]
  7. VITAMIN A [Concomitant]

REACTIONS (5)
  - ABDOMINAL PAIN UPPER [None]
  - DYSPEPSIA [None]
  - DIARRHOEA [None]
  - ABDOMINAL DISTENSION [None]
  - DISCOMFORT [None]
